FAERS Safety Report 16526007 (Version 7)
Quarter: 2019Q3

REPORT INFORMATION
  Report Type: Spontaneous
  Country: US (occurrence: US)
  Receive Date: 20190703
  Receipt Date: 20190904
  Transmission Date: 20191004
  Serious: Yes (Other)
  Sender: FDA-Public Use
  Company Number: US-BEH-2019103928

PATIENT
  Age: 48 Year
  Sex: Female

DRUGS (5)
  1. HAEGARDA [Suspect]
     Active Substance: HUMAN C1-ESTERASE INHIBITOR
     Dosage: 3400 INTERNATIONAL UNIT, BIW
     Route: 058
     Dates: start: 20190629
  2. HAEGARDA [Suspect]
     Active Substance: HUMAN C1-ESTERASE INHIBITOR
     Dosage: 3400 INTERNATIONAL UNIT, BIW
     Route: 058
     Dates: start: 20190619, end: 20190820
  3. HAEGARDA [Suspect]
     Active Substance: HUMAN C1-ESTERASE INHIBITOR
     Indication: HEREDITARY ANGIOEDEMA
     Dosage: 3400 INTERNATIONAL UNIT, BIW
     Route: 058
     Dates: start: 20190618
  4. HAEGARDA [Suspect]
     Active Substance: HUMAN C1-ESTERASE INHIBITOR
     Indication: PROPHYLAXIS
     Dosage: 3400 INTERNATIONAL UNIT, BIW
     Route: 058
     Dates: start: 20190616
  5. HAEGARDA [Suspect]
     Active Substance: HUMAN C1-ESTERASE INHIBITOR
     Dosage: 2800 INTERNATIONAL UNIT, BIW
     Route: 042
     Dates: start: 2019

REACTIONS (2)
  - Drug ineffective [Unknown]
  - Swelling [Recovered/Resolved]

NARRATIVE: CASE EVENT DATE: 20190619
